FAERS Safety Report 25036688 (Version 1)
Quarter: 2025Q1

REPORT INFORMATION
  Report Type: Report from Study
  Country: DE (occurrence: DE)
  Receive Date: 20250304
  Receipt Date: 20250304
  Transmission Date: 20250409
  Serious: Yes (Other)
  Sender: MYLAN
  Company Number: DE-MYLANLABS-2025M1017676

PATIENT
  Sex: Female

DRUGS (1)
  1. GLATIRAMER [Suspect]
     Active Substance: GLATIRAMER
     Indication: Multiple sclerosis
     Dosage: QD (20 MG/ ML)
     Dates: end: 20240601

REACTIONS (2)
  - Multiple sclerosis relapse [Unknown]
  - Dyspnoea [Unknown]
